FAERS Safety Report 7114517-2 (Version None)
Quarter: 2010Q4

REPORT INFORMATION
  Report Type: 
  Country: None (occurrence: None)
  Receive Date: 20101119
  Receipt Date: 20101116
  Transmission Date: 20110411
  Serious: Yes (Other)
  Sender: FDA-Public Use
  Company Number: FR-MERCK-1011FRA00073

PATIENT
  Age: 57 Year
  Sex: Female

DRUGS (4)
  1. HYZAAR [Suspect]
     Indication: HYPERTENSION
     Route: 048
  2. PRAVASTATIN SODIUM [Concomitant]
     Indication: DYSLIPIDAEMIA
     Route: 048
  3. CHONDROITIN [Concomitant]
     Route: 048
  4. ESTROGENS (UNSPECIFIED) [Concomitant]
     Route: 048

REACTIONS (1)
  - OSTEONECROSIS [None]
